FAERS Safety Report 21257436 (Version 1)
Quarter: 2022Q3

REPORT INFORMATION
  Report Type: Report from Study
  Country: TR (occurrence: TR)
  Receive Date: 20220826
  Receipt Date: 20220826
  Transmission Date: 20221027
  Serious: Yes (Death)
  Sender: FDA-Public Use
  Company Number: TR-SUN PHARMACEUTICAL INDUSTRIES LTD-2022R1-352425

PATIENT
  Sex: Female

DRUGS (3)
  1. CARBOPLATIN [Suspect]
     Active Substance: CARBOPLATIN
     Indication: Ovarian cancer
     Dosage: UNK/ AUC 5 OR 6
     Route: 065
  2. CISPLATIN [Suspect]
     Active Substance: CISPLATIN
     Indication: Ovarian cancer
     Dosage: UNK
     Route: 065
  3. MITOMYCIN [Suspect]
     Active Substance: MITOMYCIN
     Indication: Ovarian cancer
     Dosage: 30 MILLIGRAM/SQ. METER
     Route: 065

REACTIONS (3)
  - Disease progression [Fatal]
  - Vital functions abnormal [Fatal]
  - Organ failure [Fatal]
